FAERS Safety Report 5103577-6 (Version None)
Quarter: 2006Q3

REPORT INFORMATION
  Report Type: 
  Country: None (occurrence: None)
  Receive Date: 20060908
  Receipt Date: 20060825
  Transmission Date: 20061208
  Serious: Yes (Hospitalization, Other)
  Sender: FDA-Public Use
  Company Number: 2005BI002383

PATIENT
  Age: 60 Year
  Sex: Female
  Weight: 122.4712 kg

DRUGS (4)
  1. AVONEX [Suspect]
     Indication: MULTIPLE SCLEROSIS
     Dosage: 30 UG QW IM
     Route: 030
     Dates: start: 20020401
  2. AVONEX [Suspect]
     Indication: MULTIPLE SCLEROSIS
     Dosage: 30 UG QW IM
     Route: 030
  3. AXERT [Concomitant]
  4. NORTRIPTYLINE HCL [Concomitant]

REACTIONS (3)
  - CARDIAC DISORDER [None]
  - CARDIAC PROCEDURE COMPLICATION [None]
  - HAEMORRHAGE SUBCUTANEOUS [None]
